FAERS Safety Report 11923264 (Version 2)
Quarter: 2016Q2

REPORT INFORMATION
  Report Type: Spontaneous
  Country: US (occurrence: US)
  Receive Date: 20160118
  Receipt Date: 20160609
  Transmission Date: 20160815
  Serious: Yes (Hospitalization)
  Sender: FDA-Public Use
  Company Number: US-AMGEN-USASP2016003275

PATIENT
  Age: 82 Year
  Sex: Female

DRUGS (1)
  1. PROLIA [Suspect]
     Active Substance: DENOSUMAB
     Indication: PRODUCT USED FOR UNKNOWN INDICATION
     Dosage: UNK
     Route: 065
     Dates: start: 201509

REACTIONS (24)
  - Pain [Unknown]
  - Peripheral swelling [Unknown]
  - Urinary incontinence [Unknown]
  - Agitation [Unknown]
  - Asthenia [Unknown]
  - Bone pain [Unknown]
  - Adverse drug reaction [Unknown]
  - Limb discomfort [Unknown]
  - Gastrooesophageal reflux disease [Unknown]
  - Hospitalisation [Not Recovered/Not Resolved]
  - Muscle spasms [Unknown]
  - Back pain [Unknown]
  - Confusional state [Unknown]
  - Growing pains [Unknown]
  - Rash pruritic [Unknown]
  - Oral pain [Unknown]
  - Myalgia [Unknown]
  - Blood sodium decreased [Unknown]
  - Anal incontinence [Unknown]
  - Amnesia [Unknown]
  - Abdominal pain upper [Unknown]
  - Pain in jaw [Unknown]
  - Pelvic pain [Unknown]
  - Pain in extremity [Unknown]

NARRATIVE: CASE EVENT DATE: 2015
